FAERS Safety Report 13273583 (Version 2)
Quarter: 2017Q1

REPORT INFORMATION
  Report Type: Spontaneous
  Country: US (occurrence: US)
  Receive Date: 20170227
  Receipt Date: 20170301
  Transmission Date: 20170428
  Serious: Yes (Other)
  Sender: FDA-Public Use
  Company Number: US-LANTHEUS-LMI-2017-00079

PATIENT
  Age: 52 Year
  Sex: Male

DRUGS (1)
  1. DEFINITY [Suspect]
     Active Substance: PERFLUTREN
     Indication: PRODUCT USED FOR UNKNOWN INDICATION
     Dosage: 1 MG TOTAL (0.5MG VIA PERIPHERAL LINE, THEN 0.5MG VIA CENTRAL LINE)
     Route: 042
     Dates: start: 20170210, end: 20170210

REACTIONS (6)
  - Skin exfoliation [Unknown]
  - Extravasation [Unknown]
  - Blister [Unknown]
  - Drug ineffective [Unknown]
  - Erythema [Unknown]
  - Hypersensitivity [Unknown]

NARRATIVE: CASE EVENT DATE: 20170210
